FAERS Safety Report 6583119-9 (Version None)
Quarter: 2010Q1

REPORT INFORMATION
  Report Type: 
  Country: None (occurrence: None)
  Receive Date: 20100216
  Receipt Date: 20100210
  Transmission Date: 20100710
  Serious: Yes (Other)
  Sender: FDA-Public Use
  Company Number: BR-ROCHE-683623

PATIENT
  Sex: Female
  Weight: 56 kg

DRUGS (8)
  1. FANSIDAR [Suspect]
     Indication: UVEITIS
     Route: 065
     Dates: start: 20070101
  2. FANSIDAR [Suspect]
     Route: 065
  3. FANSIDAR [Suspect]
     Route: 065
     Dates: end: 20090701
  4. BACTRIM-F [Suspect]
     Indication: UVEITIS
     Dosage: 2 TABLETS EVERY 12 HOURS.
     Route: 065
  5. METICORTEN [Concomitant]
     Dosage: INDICATION: TO CONTROL WOUND
  6. DARAPRIM [Concomitant]
     Indication: TOXOPLASMOSIS
  7. FOLIC ACID [Concomitant]
     Indication: ANAEMIA
  8. NEXIUM [Concomitant]
     Dosage: INDICATION: TO CONTROL STOMACH

REACTIONS (1)
  - UVEITIS [None]
